FAERS Safety Report 11391081 (Version 1)
Quarter: 2015Q3

REPORT INFORMATION
  Report Type: Spontaneous
  Country: US (occurrence: None)
  Receive Date: 20150814
  Receipt Date: 20150814
  Transmission Date: 20151125
  Serious: No
  Sender: FDA-Public Use
  Company Number: None

PATIENT
  Age: 51 Year
  Sex: Male

DRUGS (12)
  1. TECFIDERA [Concomitant]
     Active Substance: DIMETHYL FUMARATE
  2. DEXTROAMPHETAMINE-AMPHETAMINE (AMPHETAMINE SALT COMBO) [Concomitant]
  3. AMPYRA [Suspect]
     Active Substance: DALFAMPRIDINE
     Indication: MULTIPLE SCLEROSIS
     Route: 048
     Dates: start: 201006
  4. HYDROCODONE-ACETAMINOPHEN (NORCO) [Concomitant]
  5. NEURONTIN [Concomitant]
     Active Substance: GABAPENTIN
  6. TOPIRAMATE (TOPAMAX) [Concomitant]
  7. LIORESAL [Concomitant]
     Active Substance: BACLOFEN
  8. SILDENAFIL (REVATIO) [Concomitant]
  9. TRIAMCINALONE ACETONIDE (KENALOG) [Concomitant]
  10. FLOMAX [Concomitant]
     Active Substance: TAMSULOSIN HYDROCHLORIDE
  11. POLYMYXIN B-TRIMETHOPRIM (POLYTRM) [Concomitant]
  12. MORPHINE (MS CONTIN/ORAMORPH SR) [Concomitant]

REACTIONS (1)
  - Vitamin D abnormal [None]

NARRATIVE: CASE EVENT DATE: 20150715
